FAERS Safety Report 19174685 (Version 1)
Quarter: 2021Q2

REPORT INFORMATION
  Report Type: Spontaneous
  Country: US (occurrence: US)
  Receive Date: 20210423
  Receipt Date: 20210423
  Transmission Date: 20210717
  Serious: No
  Sender: FDA-Public Use
  Company Number: US-BAYER-2021-130144

PATIENT
  Age: 67 Year
  Sex: Male

DRUGS (2)
  1. BAYER LOW DOSE [Concomitant]
     Active Substance: ASPIRIN
     Dosage: UNK
  2. MIRALAX [Suspect]
     Active Substance: POLYETHYLENE GLYCOL 3350
     Indication: GASTROINTESTINAL DISORDER
     Dosage: UNK, 1 CAP DAILY DOSE
     Route: 048
     Dates: end: 20210422

REACTIONS (2)
  - Drug ineffective [Unknown]
  - Product use issue [Unknown]
